FAERS Safety Report 18242701 (Version 1)
Quarter: 2020Q3

REPORT INFORMATION
  Report Type: Spontaneous
  Country: IE (occurrence: IE)
  Receive Date: 20200908
  Receipt Date: 20200908
  Transmission Date: 20201103
  Serious: Yes (Other)
  Sender: FDA-Public Use
  Company Number: IE-SHIRE-IE202024692

PATIENT

DRUGS (2)
  1. HYQVIA [Suspect]
     Active Substance: HUMAN IMMUNOGLOBULIN G\HYALURONIDASE RECOMBINANT HUMAN
     Dosage: 12.5 GRAM, 3X A WEEK
     Route: 058
     Dates: start: 20200716
  2. HYQVIA [Suspect]
     Active Substance: HUMAN IMMUNOGLOBULIN G\HYALURONIDASE RECOMBINANT HUMAN
     Indication: PRODUCT USED FOR UNKNOWN INDICATION
     Dosage: 12.5 GRAM, 3X A WEEK
     Route: 058
     Dates: start: 20200716

REACTIONS (2)
  - Headache [Recovered/Resolved]
  - Meningitis aseptic [Unknown]

NARRATIVE: CASE EVENT DATE: 20200718
